FAERS Safety Report 11130113 (Version 2)
Quarter: 2015Q3

REPORT INFORMATION
  Report Type: Spontaneous
  Country: US (occurrence: US)
  Receive Date: 20150521
  Receipt Date: 20150731
  Transmission Date: 20151125
  Serious: Yes (Other)
  Sender: FDA-Public Use
  Company Number: US-TEVA-563000USA

PATIENT
  Sex: Female

DRUGS (1)
  1. COPAXONE [Suspect]
     Active Substance: GLATIRAMER ACETATE
     Indication: MULTIPLE SCLEROSIS
     Route: 065
     Dates: start: 2014

REACTIONS (6)
  - Nephrolithiasis [Unknown]
  - Therapy change [Unknown]
  - Multiple sclerosis relapse [Unknown]
  - Injection site reaction [Unknown]
  - Pneumonia [Unknown]
  - Increased upper airway secretion [Unknown]

NARRATIVE: CASE EVENT DATE: 201412
